FAERS Safety Report 5146555-3 (Version None)
Quarter: 2006Q4

REPORT INFORMATION
  Report Type: 
  Country: None (occurrence: None)
  Receive Date: 20061109
  Receipt Date: 20061026
  Transmission Date: 20070319
  Serious: Yes (Other)
  Sender: FDA-Public Use
  Company Number: PHBS2006GB16800

PATIENT
  Age: 60 Year
  Sex: Female

DRUGS (2)
  1. LETROZOLE [Suspect]
     Indication: BREAST CANCER FEMALE
     Dosage: 2.5 MG/DAY
  2. AMITRIPTYLINE HCL [Concomitant]
     Dosage: 10 MG/DAY

REACTIONS (16)
  - ABNORMAL BEHAVIOUR [None]
  - AGGRESSION [None]
  - AGITATION [None]
  - ANGER [None]
  - ASTHENIA [None]
  - BIPOLAR DISORDER [None]
  - DECREASED INTEREST [None]
  - DISTRACTIBILITY [None]
  - DISTURBANCE IN ATTENTION [None]
  - DYSPHORIA [None]
  - INSOMNIA [None]
  - MAJOR DEPRESSION [None]
  - MANIA [None]
  - MOOD ALTERED [None]
  - PSYCHOMOTOR HYPERACTIVITY [None]
  - SUICIDAL IDEATION [None]
